FAERS Safety Report 9293954 (Version 1)
Quarter: 2013Q1

REPORT INFORMATION
  Report Type: Spontaneous
  Country: US (occurrence: None)
  Receive Date: 20121217
  Receipt Date: 20121217
  Transmission Date: 20140127
  Serious: No
  Sender: FDA-Public Use
  Company Number: 1000025573

PATIENT
  Age: 78 Year
  Sex: Male

DRUGS (8)
  1. NAMENDA [Suspect]
     Indication: DEMENTIA
  2. ARICEPT [Suspect]
     Indication: DEMENTIA
  3. UNSPECIFIED [Suspect]
     Indication: DEMENTIA
  4. COUMADIN (WARFARIN) (WARFARIN) [Concomitant]
  5. METOPROLOL (METOPROLOL) (METOPROLOL) [Concomitant]
  6. PLAVIX (CLOPIDOGREL BISULFATE) (CLOPIDOGREL BISULFATE) [Concomitant]
  7. CRESTOR (ROSUVASTATIN CALCIUM) (ROSUVASTATIN CALCIUM) [Concomitant]
  8. VITAMINS (VITAMIN) (VITAMIN) [Concomitant]

REACTIONS (1)
  - Drug ineffective [None]
